FAERS Safety Report 5621894-8 (Version None)
Quarter: 2008Q1

REPORT INFORMATION
  Report Type: 
  Country: None (occurrence: None)
  Receive Date: 20080211
  Receipt Date: 20071219
  Transmission Date: 20080703
  Serious: No
  Sender: FDA-Public Use
  Company Number: US-BRISTOL-MYERS SQUIBB COMPANY-14020051

PATIENT
  Age: 44 Year
  Sex: Female
  Weight: 68 kg

DRUGS (4)
  1. IXEMPRA [Suspect]
     Indication: BREAST CANCER
     Dosage: 1ST DOSE ON 23NOV2007. 2ND DOSE 07-DEC-2007.
     Route: 042
     Dates: start: 20071123
  2. CYMBALTA [Concomitant]
  3. NEURONTIN [Concomitant]
  4. AMBIEN [Concomitant]

REACTIONS (2)
  - INFUSION SITE PAIN [None]
  - INFUSION SITE SWELLING [None]
